FAERS Safety Report 16180762 (Version 3)
Quarter: 2025Q2

REPORT INFORMATION
  Report Type: Spontaneous
  Country: DK (occurrence: DK)
  Receive Date: 20190410
  Receipt Date: 20250402
  Transmission Date: 20250717
  Serious: Yes (Death, Congenital Anomaly, Other)
  Sender: ABBVIE
  Company Number: None

PATIENT

DRUGS (1)
  1. HUMIRA [Suspect]
     Active Substance: ADALIMUMAB
     Indication: Maternal exposure timing unspecified
     Route: 064

REACTIONS (9)
  - Trisomy 9 [Fatal]
  - Single umbilical artery [Fatal]
  - Pulmonary malformation [Fatal]
  - Retrognathia [Fatal]
  - Persistent left superior vena cava [Fatal]
  - Congenital uterine anomaly [Fatal]
  - Hypoplastic right heart syndrome [Fatal]
  - Micrognathia [Fatal]
  - Foetal exposure during pregnancy [Unknown]

NARRATIVE: CASE EVENT DATE: 20180101
